FAERS Safety Report 8914642 (Version 1)
Quarter: 2012Q4

REPORT INFORMATION
  Report Type: 
  Country: AU (occurrence: AU)
  Receive Date: 20121119
  Receipt Date: 20121119
  Transmission Date: 20130627
  Serious: Yes (Other)
  Sender: FDA-Public Use
  Company Number: AU-SHIRE-SPV1-2012-00946

PATIENT

DRUGS (6)
  1. AGRYLIN [Suspect]
     Indication: ESSENTIAL THROMBOCYTHAEMIA
     Dosage: 0.5mg to 3.5mg daily
  2. AGRYLIN [Suspect]
     Indication: POLYCYTHAEMIA VERA
  3. AGRYLIN [Suspect]
     Indication: MYELOFIBROSIS
  4. AGRYLIN [Suspect]
     Indication: MYELOPROLIFERATIVE DISORDER
  5. AGRYLIN [Suspect]
     Indication: CHRONIC MYELOMONOCYTIC LEUKAEMIA
  6. HYDROXYUREA [Concomitant]
     Indication: PRODUCT USED FOR UNKNOWN INDICATION
     Dosage: UNK, Unknown

REACTIONS (9)
  - Pancytopenia [Unknown]
  - Cardiomyopathy [Unknown]
  - Cardiac failure congestive [Unknown]
  - Drug ineffective [Unknown]
  - Abdominal pain [Unknown]
  - Off label use [Unknown]
  - Off label use [Unknown]
  - Off label use [Unknown]
  - Off label use [Unknown]
